FAERS Safety Report 11814538 (Version 3)
Quarter: 2016Q1

REPORT INFORMATION
  Report Type: Spontaneous
  Country: US (occurrence: US)
  Receive Date: 20151209
  Receipt Date: 20160113
  Transmission Date: 20160525
  Serious: Yes (Death, Hospitalization, Other)
  Sender: FDA-Public Use
  Company Number: US-009507513-1512USA003898

PATIENT
  Age: 58 Year
  Sex: Male

DRUGS (3)
  1. KEYTRUDA [Suspect]
     Active Substance: PEMBROLIZUMAB
     Indication: MALIGNANT MELANOMA
     Dosage: HAD TAKEN 2 DOSES
     Route: 041
  2. MEKINIST [Concomitant]
     Active Substance: TRAMETINIB DIMETHYL SULFOXIDE
  3. TAFINLAR [Concomitant]
     Active Substance: DABRAFENIB MESYLATE

REACTIONS (4)
  - Brain neoplasm [Unknown]
  - Neoplasm malignant [Fatal]
  - Decreased appetite [Unknown]
  - Seizure [Unknown]

NARRATIVE: CASE EVENT DATE: 201508
